FAERS Safety Report 15930448 (Version 1)
Quarter: 2019Q1

REPORT INFORMATION
  Report Type: Report from Study
  Country: CO (occurrence: CO)
  Receive Date: 20190207
  Receipt Date: 20190207
  Transmission Date: 20190417
  Serious: Yes (Other)
  Sender: FDA-Public Use
  Company Number: CO-ROCHE-2259890

PATIENT
  Age: 60 Year
  Sex: Female
  Weight: 72 kg

DRUGS (2)
  1. XOLAIR [Suspect]
     Active Substance: OMALIZUMAB
     Indication: CHRONIC SPONTANEOUS URTICARIA
     Route: 058
     Dates: start: 20161012
  2. XOLAIR [Suspect]
     Active Substance: OMALIZUMAB
     Route: 058
     Dates: start: 20180413

REACTIONS (5)
  - Burning sensation [Recovered/Resolved with Sequelae]
  - Urticarial vasculitis [Unknown]
  - Rosacea [Recovered/Resolved with Sequelae]
  - Inappropriate schedule of product administration [Unknown]
  - Urticaria [Recovered/Resolved with Sequelae]

NARRATIVE: CASE EVENT DATE: 20180723
